FAERS Safety Report 24782068 (Version 1)
Quarter: 2024Q4

REPORT INFORMATION
  Report Type: Report from Study
  Country: IE (occurrence: IE)
  Receive Date: 20241227
  Receipt Date: 20241227
  Transmission Date: 20250115
  Serious: Yes (Hospitalization)
  Sender: ALEXION PHARMACEUTICALS
  Company Number: IE-ASTRAZENECA-202412EEA020449IE

PATIENT
  Age: 53 Year

DRUGS (13)
  1. BENRALIZUMAB [Suspect]
     Active Substance: BENRALIZUMAB
     Indication: Asthma
     Dosage: 30 MILLIGRAM
  2. BENRALIZUMAB [Suspect]
     Active Substance: BENRALIZUMAB
     Dosage: 30 MILLIGRAM
     Route: 058
  3. BENRALIZUMAB [Suspect]
     Active Substance: BENRALIZUMAB
     Dosage: 30 MILLIGRAM
  4. BENRALIZUMAB [Suspect]
     Active Substance: BENRALIZUMAB
     Dosage: 30 MILLIGRAM
     Route: 058
  5. FLUTIFORM [Concomitant]
     Active Substance: FLUTIFORM
     Dosage: 125 MILLIGRAM
  6. ATROVENT [Concomitant]
     Active Substance: IPRATROPIUM BROMIDE
     Dosage: 1 MILLIGRAM
  7. ANOR [Concomitant]
     Dosage: 1 MILLIGRAM
  8. PREDNISONE [Concomitant]
     Active Substance: PREDNISONE
     Dosage: 30 MILLIGRAM
  9. MONTELUKAST [Concomitant]
     Active Substance: MONTELUKAST SODIUM
     Dosage: 10 MILLIGRAM
  10. FLUTICASONE FUROATE [Concomitant]
     Active Substance: FLUTICASONE FUROATE
     Dosage: 1 MILLIGRAM
  11. VENLAFEX [Concomitant]
     Dosage: 150 MILLIGRAM
  12. ALBUTEROL [Concomitant]
     Active Substance: ALBUTEROL
     Dosage: 1 MILLIGRAM
  13. PROPANZ [Concomitant]
     Dosage: 80 MILLIGRAM

REACTIONS (2)
  - Intensive care [Not Recovered/Not Resolved]
  - Influenza A virus test [Unknown]
